FAERS Safety Report 15088735 (Version 1)
Quarter: 2018Q2

REPORT INFORMATION
  Report Type: Spontaneous
  Country: US (occurrence: US)
  Receive Date: 20180629
  Receipt Date: 20180629
  Transmission Date: 20180711
  Serious: Yes (Other)
  Sender: FDA-Public Use
  Company Number: US-PFIZER INC-2018260409

PATIENT
  Age: 71 Year
  Sex: Female
  Weight: 111 kg

DRUGS (2)
  1. IBRANCE [Suspect]
     Active Substance: PALBOCICLIB
     Indication: BREAST CANCER
     Dosage: 125 MG TABLET 1 TIME DAILY 21 DAYS ON AND 7 DAYS OFF
     Route: 048
     Dates: start: 201710, end: 20180612
  2. LETROZOLE. [Concomitant]
     Active Substance: LETROZOLE
     Indication: BREAST CANCER
     Dosage: 2.5 MG TABLET 1 TIME DAILY
     Route: 048
     Dates: start: 201709

REACTIONS (1)
  - Neutrophil count decreased [Recovering/Resolving]

NARRATIVE: CASE EVENT DATE: 20180612
